FAERS Safety Report 8798006 (Version 2)
Quarter: 2012Q4

REPORT INFORMATION
  Report Type: 
  Country: DE (occurrence: DK)
  Receive Date: 20120919
  Receipt Date: 20121019
  Transmission Date: 20130627
  Serious: Yes (Life-Threatening, Hospitalization)
  Sender: FDA-Public Use
  Company Number: DK-BRISTOL-MYERS SQUIBB COMPANY-16955924

PATIENT
  Age: 62 Year
  Sex: Male

DRUGS (5)
  1. METFORMIN HCL [Suspect]
     Indication: TYPE 2 DIABETES MELLITUS
  2. PARACETAMOL [Suspect]
  3. GLIMEPIRIDE [Suspect]
  4. THIAZIDE [Suspect]
  5. LOSARTAN [Suspect]

REACTIONS (5)
  - Cardiac arrest [Unknown]
  - Respiratory arrest [Unknown]
  - Lactic acidosis [Unknown]
  - Hyperglycaemia [Unknown]
  - Ulcer [Unknown]
